FAERS Safety Report 9291523 (Version 2)
Quarter: 2013Q3

REPORT INFORMATION
  Report Type: Spontaneous
  Country: DE (occurrence: DE)
  Receive Date: 20130515
  Receipt Date: 20130715
  Transmission Date: 20140515
  Serious: No
  Sender: FDA-Public Use
  Company Number: DE-MYLANLABS-2013S1010175

PATIENT
  Age: 4 Year
  Sex: Female

DRUGS (1)
  1. CARBIDOPA + LEVODOPA [Suspect]
     Indication: PRODUCT USED FOR UNKNOWN INDICATION
     Route: 048
     Dates: start: 20120927

REACTIONS (1)
  - Accidental exposure to product by child [Recovered/Resolved]
